FAERS Safety Report 7270432-5 (Version None)
Quarter: 2011Q1

REPORT INFORMATION
  Report Type: 
  Country: None (occurrence: None)
  Receive Date: 20110202
  Receipt Date: 20110125
  Transmission Date: 20110831
  Serious: Yes (Hospitalization)
  Sender: FDA-Public Use
  Company Number: JP-BRISTOL-MYERS SQUIBB COMPANY-15518665

PATIENT
  Age: 65 Year
  Sex: Male
  Weight: 68 kg

DRUGS (3)
  1. CETUXIMAB [Suspect]
     Indication: GASTRIC CANCER
     Dosage: CETUXIMAB 5MG/ML INTRAVENOUS INFUSION LAST INFUSION ON 28DEC2010
     Route: 042
     Dates: start: 20101102
  2. CISPLATIN [Suspect]
     Indication: GASTRIC CANCER
     Route: 042
  3. XELODA [Suspect]
     Indication: GASTRIC CANCER
     Dosage: CAPECITABINE TAB
     Route: 048

REACTIONS (1)
  - PULMONARY EMBOLISM [None]
